FAERS Safety Report 5418722-2 (Version None)
Quarter: 2007Q3

REPORT INFORMATION
  Report Type: 
  Country: None (occurrence: None)
  Receive Date: 20070817
  Receipt Date: 20070806
  Transmission Date: 20080115
  Serious: Yes (Hospitalization, Other)
  Sender: FDA-Public Use
  Company Number: AU-PFIZER INC-2007051468

PATIENT
  Sex: Male
  Weight: 85 kg

DRUGS (1)
  1. SUTENT [Suspect]
     Indication: SPINAL CORD COMPRESSION
     Route: 048
     Dates: start: 20070521, end: 20070525

REACTIONS (4)
  - ASTHENIA [None]
  - DISEASE PROGRESSION [None]
  - NEOPLASM MALIGNANT [None]
  - SENSORY LOSS [None]
